FAERS Safety Report 9097058 (Version 1)
Quarter: 2013Q1

REPORT INFORMATION
  Report Type: Spontaneous
  Country: CA (occurrence: None)
  Receive Date: 20130123
  Receipt Date: 20130123
  Transmission Date: 20140127
  Serious: Yes (Other)
  Sender: FDA-Public Use
  Company Number: 2013-0237

PATIENT
  Age: 61 Year
  Sex: Female

DRUGS (2)
  1. SOMATULINE AUTOGEL [Suspect]
     Indication: PRODUCT USED FOR UNKNOWN INDICATION
     Route: 058
  2. ALTACE [Concomitant]

REACTIONS (7)
  - Abdominal pain [None]
  - Constipation [None]
  - Dehydration [None]
  - Diarrhoea [None]
  - Headache [None]
  - Nausea [None]
  - Vomiting [None]
